FAERS Safety Report 5137683-7 (Version None)
Quarter: 2006Q4

REPORT INFORMATION
  Report Type: 
  Country: None (occurrence: None)
  Receive Date: 20061030
  Receipt Date: 20051215
  Transmission Date: 20070319
  Serious: No
  Sender: FDA-Public Use
  Company Number: US-GLAXOSMITHKLINE-A0585961A

PATIENT
  Age: 58 Year
  Sex: Female

DRUGS (10)
  1. ADVAIR HFA [Suspect]
     Indication: ASTHMA
     Route: 055
     Dates: start: 20051201, end: 20051214
  2. LOPRESSOR [Concomitant]
  3. ALBUTEROL [Concomitant]
  4. ATROVENT [Concomitant]
  5. MONODOX [Concomitant]
  6. ACIPHEX [Concomitant]
  7. NEPHROCAPS [Concomitant]
  8. FOSAMAX [Concomitant]
     Route: 065
  9. TEMAZEPAM [Concomitant]
  10. SIMEPAR [Concomitant]
     Route: 065

REACTIONS (4)
  - COUGH [None]
  - DRUG INEFFECTIVE [None]
  - DYSPNOEA [None]
  - PHARMACEUTICAL PRODUCT COMPLAINT [None]
